FAERS Safety Report 24073955 (Version 1)
Quarter: 2024Q3

REPORT INFORMATION
  Report Type: Spontaneous
  Country: JP (occurrence: JP)
  Receive Date: 20240710
  Receipt Date: 20240710
  Transmission Date: 20241017
  Serious: No
  Sender: PIERRE FABRE MEDICAMENT
  Company Number: JP-PFM-2021-02046

PATIENT
  Age: 7 Month
  Sex: Female

DRUGS (2)
  1. PROPRANOLOL HYDROCHLORIDE [Suspect]
     Active Substance: PROPRANOLOL HYDROCHLORIDE
     Indication: Infantile haemangioma
     Dosage: 1 MG/KG/DAY (0.5 MG/KG/ 12 HOURS)
     Route: 048
     Dates: start: 20190129, end: 20190130
  2. PROPRANOLOL HYDROCHLORIDE [Suspect]
     Active Substance: PROPRANOLOL HYDROCHLORIDE
     Dosage: 2 MG/KG/DAY (1 MG/KG/ 12 HOURS)
     Route: 048
     Dates: start: 20190131, end: 20190313

REACTIONS (1)
  - Hypoglycaemia [Recovered/Resolved]
